FAERS Safety Report 23300759 (Version 2)
Quarter: 2024Q1

REPORT INFORMATION
  Report Type: Spontaneous
  Country: PT (occurrence: PT)
  Receive Date: 20231215
  Receipt Date: 20240120
  Transmission Date: 20240410
  Serious: Yes (Death, Hospitalization, Other)
  Sender: FDA-Public Use
  Company Number: PT-Accord-395314

PATIENT
  Age: 65 Year
  Sex: Male

DRUGS (2)
  1. ETOPOSIDE [Suspect]
     Active Substance: ETOPOSIDE
     Indication: Haemophagocytic lymphohistiocytosis
     Dosage: BIWEEKLY FOR 2 WEEKS, THEN WEEKLY
  2. DEXAMETHASONE [Concomitant]
     Active Substance: DEXAMETHASONE
     Indication: Haemophagocytic lymphohistiocytosis
     Dosage: FOR 2 WEEKS WITH PROGRESSIVE TAPERING

REACTIONS (4)
  - Febrile neutropenia [Fatal]
  - Off label use [Unknown]
  - Pneumonia [Fatal]
  - Condition aggravated [Fatal]
